FAERS Safety Report 4755026-5 (Version None)
Quarter: 2005Q3

REPORT INFORMATION
  Report Type: 
  Country: None (occurrence: None)
  Receive Date: 20050825
  Receipt Date: 20050815
  Transmission Date: 20060218
  Serious: Yes (Disabling)
  Sender: FDA-Public Use
  Company Number: 2005114485

PATIENT
  Age: 77 Year
  Sex: Male
  Weight: 70 kg

DRUGS (7)
  1. ARTHROTEC [Suspect]
     Indication: ARTHRALGIA
     Dosage: 50 MG (50 MG, 1 IN 1 D), ORAL
     Route: 048
  2. ARTHROTEC [Suspect]
     Indication: ARTHRITIS
     Dosage: 50 MG (50 MG, 1 IN 1 D), ORAL
     Route: 048
  3. TOLTERODINE TARTRATE [Suspect]
     Indication: NOCTURIA
     Dosage: 2 MG (1 MG, 2 IN 1 D), ORAL
     Route: 048
  4. ANTIHYPERTENSIVES (ANTIHYPERTENSIVES) [Concomitant]
  5. ARCOXIA [Concomitant]
  6. LOSARTAN POTASSIUM [Concomitant]
  7. BENDROFLUAZIDE (BENDROFLUMETHIAZIDE) [Concomitant]

REACTIONS (6)
  - ARTHRALGIA [None]
  - MUSCLE SPASMS [None]
  - NOCTURIA [None]
  - POLYURIA [None]
  - TREATMENT NONCOMPLIANCE [None]
  - WEIGHT DECREASED [None]
